FAERS Safety Report 10592620 (Version 1)
Quarter: 2014Q4

REPORT INFORMATION
  Report Type: Spontaneous
  Country: US (occurrence: None)
  Receive Date: 20141117
  Receipt Date: 20141117
  Transmission Date: 20150529
  Serious: Yes (Other)
  Sender: FDA-Public Use
  Company Number: IMP_08140_2014

PATIENT
  Age: 57 Year
  Sex: Male

DRUGS (4)
  1. EPINEPHRINE. [Suspect]
     Active Substance: EPINEPHRINE
     Indication: VASOCONSTRICTION
  2. PREDNISONE. [Suspect]
     Active Substance: PREDNISONE
     Indication: GOUT
  3. LIDOCAINE 1% [Suspect]
     Active Substance: LIDOCAINE
     Indication: ANAESTHESIA
     Dosage: [PRE-TREATMENT]
  4. MIDODRINE [Suspect]
     Active Substance: MIDODRINE
     Indication: ORTHOSTATIC HYPOTENSION
     Route: 048

REACTIONS (3)
  - Heart rate increased [None]
  - Hypertension [None]
  - Drug interaction [None]
